FAERS Safety Report 8261758-7 (Version None)
Quarter: 2012Q2

REPORT INFORMATION
  Report Type: 
  Country: None (occurrence: None)
  Receive Date: 20120405
  Receipt Date: 20120322
  Transmission Date: 20120825
  Serious: Yes (Disabling)
  Sender: FDA-Public Use
  Company Number: FR-CELGENEUS-056-21880-11110782

PATIENT
  Sex: Female

DRUGS (6)
  1. REVLIMID [Suspect]
     Indication: OVARIAN CANCER
     Dosage: 15 MILLIGRAM
     Route: 048
     Dates: start: 20111020, end: 20111103
  2. LOVENOX [Concomitant]
     Dosage: 1 OTHER
     Route: 065
  3. DOXORUBICIN HYDROCHLORIDE [Suspect]
     Indication: OVARIAN CANCER
     Dosage: 30 MILLIGRAM/SQ. METER
     Route: 065
     Dates: start: 20111019
  4. CARBOPLATIN [Suspect]
     Indication: OVARIAN CANCER
     Dosage: 475 MILLIGRAM
     Route: 065
     Dates: start: 20111019
  5. LAMOTRGINE [Concomitant]
     Dosage: 200 MILLIGRAM
     Route: 065
  6. OXAZEPAM [Concomitant]
     Dosage: 10 MILLIGRAM
     Route: 065

REACTIONS (1)
  - BLINDNESS UNILATERAL [None]
